FAERS Safety Report 6859687-6 (Version None)
Quarter: 2010Q3

REPORT INFORMATION
  Report Type: 
  Country: None (occurrence: None)
  Receive Date: 20100720
  Receipt Date: 20100713
  Transmission Date: 20110219
  Serious: Yes (Hospitalization)
  Sender: FDA-Public Use
  Company Number: US-ASTRAZENECA-2008UW28745

PATIENT
  Age: 17454 Day
  Sex: Male

DRUGS (1)
  1. SEROQUEL [Suspect]
     Indication: SLEEP DISORDER
     Dosage: 300 MG TO 1200 MG
     Route: 048
     Dates: start: 20040301

REACTIONS (6)
  - AUTONOMIC NEUROPATHY [None]
  - DIABETES MELLITUS [None]
  - DIABETIC KETOACIDOSIS [None]
  - DIABETIC NEUROPATHY [None]
  - INJURY [None]
  - TYPE 2 DIABETES MELLITUS [None]
